FAERS Safety Report 11982118 (Version 1)
Quarter: 2016Q1

REPORT INFORMATION
  Report Type: Report from Study
  Country: US (occurrence: US)
  Receive Date: 20160201
  Receipt Date: 20160201
  Transmission Date: 20160526
  Serious: Yes (Hospitalization)
  Sender: FDA-Public Use
  Company Number: US-ROCHE-1701549

PATIENT
  Sex: Female
  Weight: 133.93 kg

DRUGS (12)
  1. ZYRTEC [Concomitant]
     Active Substance: CETIRIZINE HYDROCHLORIDE
     Indication: URTICARIA
     Route: 048
     Dates: start: 1999
  2. ZANTAC [Concomitant]
     Active Substance: RANITIDINE HYDROCHLORIDE
     Route: 048
     Dates: start: 1999
  3. PREDNISONE. [Concomitant]
     Active Substance: PREDNISONE
     Indication: MULTIPLE ALLERGIES
     Dosage: STARTED MEDICATION BACK IN THE 80^S.
     Route: 048
  4. XOLAIR [Suspect]
     Active Substance: OMALIZUMAB
     Indication: CHRONIC SPONTANEOUS URTICARIA
  5. SINGULAIR [Concomitant]
     Active Substance: MONTELUKAST SODIUM
     Indication: MULTIPLE ALLERGIES
  6. XOLAIR [Suspect]
     Active Substance: OMALIZUMAB
     Indication: ASTHMA
     Dosage: 2 SHOTS, ONE IN EACH ARM.
     Route: 058
     Dates: start: 201207
  7. SINGULAIR [Concomitant]
     Active Substance: MONTELUKAST SODIUM
     Indication: ASTHMA
     Route: 048
     Dates: start: 1999
  8. BENADRYL [Concomitant]
     Active Substance: DIPHENHYDRAMINE HYDROCHLORIDE
     Dosage: 25MG UP TO 250MG, AS NEEDED.
     Route: 048
     Dates: start: 1971
  9. PULMICORT TURBUHALER [Concomitant]
     Active Substance: BUDESONIDE
     Indication: ASTHMA
     Route: 055
     Dates: start: 1999, end: 2015
  10. EPIPEN [Concomitant]
     Active Substance: EPINEPHRINE
     Dosage: AS NEEDED
     Route: 030
  11. CROMOLYN SODIUM. [Concomitant]
     Active Substance: CROMOLYN SODIUM
     Indication: URTICARIA
     Dosage: LIQUID FORM.
     Route: 048
     Dates: start: 2015
  12. ALBUTEROL. [Concomitant]
     Active Substance: ALBUTEROL
     Indication: ASTHMA
     Dosage: AS NEEDED
     Route: 055
     Dates: start: 1999

REACTIONS (6)
  - Menorrhagia [Recovered/Resolved]
  - Menstruation delayed [Not Recovered/Not Resolved]
  - Anaphylactic reaction [Recovered/Resolved]
  - Hypomenorrhoea [Recovered/Resolved with Sequelae]
  - Amenorrhoea [Recovered/Resolved with Sequelae]
  - Nasopharyngitis [Unknown]

NARRATIVE: CASE EVENT DATE: 2013
